FAERS Safety Report 21278214 (Version 1)
Quarter: 2022Q3

REPORT INFORMATION
  Report Type: Spontaneous
  Country: US (occurrence: US)
  Receive Date: 20220831
  Receipt Date: 20220831
  Transmission Date: 20221027
  Serious: Yes (Other)
  Sender: FDA-Public Use
  Company Number: US-ABBVIE-22K-163-4255246-00

PATIENT
  Age: 24 Year
  Sex: Female

DRUGS (1)
  1. HUMIRA [Suspect]
     Active Substance: ADALIMUMAB
     Indication: Colitis ulcerative
     Route: 058
     Dates: end: 20220120

REACTIONS (6)
  - Lupus-like syndrome [Unknown]
  - Joint swelling [Unknown]
  - Bone swelling [Unknown]
  - Acne [Unknown]
  - Respiratory disorder [Unknown]
  - Injection site erythema [Unknown]
